FAERS Safety Report 10655405 (Version 1)
Quarter: 2014Q4

REPORT INFORMATION
  Report Type: Spontaneous
  Country: US (occurrence: None)
  Receive Date: 20141215
  Receipt Date: 20141215
  Transmission Date: 20150529
  Serious: No
  Sender: FDA-Public Use
  Company Number: None

PATIENT
  Age: 44 Year
  Sex: Female
  Weight: 58.97 kg

DRUGS (1)
  1. BRIMONIDINE [Suspect]
     Active Substance: BRIMONIDINE\BRIMONIDINE TARTRATE
     Indication: ROSACEA
     Dosage: APPLY ONCE DAILY; APPLIED TO A SURFACE, USUALLY THE SKIN
     Route: 061
     Dates: start: 20141201, end: 20141202

REACTIONS (1)
  - Flushing [None]

NARRATIVE: CASE EVENT DATE: 20141208
